FAERS Safety Report 23567375 (Version 2)
Quarter: 2025Q1

REPORT INFORMATION
  Report Type: Report from Study
  Country: US (occurrence: US)
  Receive Date: 20240226
  Receipt Date: 20250214
  Transmission Date: 20250408
  Serious: No
  Sender: AMNEAL
  Company Number: US-AMNEAL PHARMACEUTICALS-2023-AMRX-00433

PATIENT
  Sex: Female

DRUGS (7)
  1. CARBIDOPA\LEVODOPA [Suspect]
     Active Substance: CARBIDOPA\LEVODOPA
     Indication: Parkinson^s disease
     Dosage: 1 CAPSULES, 3 /DAY
     Route: 048
     Dates: end: 20221207
  2. CARBIDOPA\LEVODOPA [Suspect]
     Active Substance: CARBIDOPA\LEVODOPA
     Dosage: 48.75/195 MILLIGRAM, 1 CAPSULES, 3 /DAY
     Route: 048
     Dates: start: 20221207
  3. CARBIDOPA\LEVODOPA [Suspect]
     Active Substance: CARBIDOPA\LEVODOPA
     Dosage: 48.75/195 MILLIGRAM, 1 CAPSULES, 3 /DAY
     Route: 048
     Dates: end: 20221207
  4. CARBIDOPA\LEVODOPA [Suspect]
     Active Substance: CARBIDOPA\LEVODOPA
     Dosage: 48.75/195 MILLIGRAM, 1 CAPSULES, 3 /DAY
     Route: 048
     Dates: start: 20230508, end: 20231103
  5. CARBIDOPA\LEVODOPA [Suspect]
     Active Substance: CARBIDOPA\LEVODOPA
     Dosage: 61.25/245 MILLIGRAM,, 1 CAPSULES, 3 /DAY
     Route: 048
     Dates: start: 20231103
  6. CARBIDOPA\LEVODOPA [Suspect]
     Active Substance: CARBIDOPA\LEVODOPA
     Dosage: 48.75/195 MILLIGRAM, 1 CAPSULES, 3 /DAY
     Route: 048
     Dates: start: 20240516
  7. CARBIDOPA\LEVODOPA [Suspect]
     Active Substance: CARBIDOPA\LEVODOPA
     Dosage: 48.75/195 MILLIGRAM, 3 CAPSULE BY MOUTH THREE TIMES A DAY AT 7-9 AM, 12:30 PM, AND 4:30 PM
     Route: 048
     Dates: start: 20240517

REACTIONS (2)
  - Musculoskeletal stiffness [Unknown]
  - Product use issue [Unknown]
